FAERS Safety Report 25064984 (Version 2)
Quarter: 2025Q1

REPORT INFORMATION
  Report Type: Report from Study
  Country: US (occurrence: US)
  Receive Date: 20250311
  Receipt Date: 20250319
  Transmission Date: 20250409
  Serious: Yes (Other)
  Sender: ABBVIE
  Company Number: US-ABBVIE-6161604

PATIENT
  Age: 64 Year
  Sex: Male

DRUGS (1)
  1. SKYRIZI [Suspect]
     Active Substance: RISANKIZUMAB-RZAA
     Indication: Psoriasis
     Route: 058

REACTIONS (10)
  - Surgery [Unknown]
  - Nasal septum deviation [Unknown]
  - Nasal disorder [Unknown]
  - Headache [Unknown]
  - Rash [Unknown]
  - Rhinorrhoea [Unknown]
  - Pruritus [Unknown]
  - Seasonal allergy [Unknown]
  - Immunodeficiency [Unknown]
  - Respiratory disorder [Unknown]

NARRATIVE: CASE EVENT DATE: 20241101
